FAERS Safety Report 5292677-6 (Version None)
Quarter: 2007Q2

REPORT INFORMATION
  Report Type: 
  Country: None (occurrence: None)
  Receive Date: 20070404
  Receipt Date: 20070320
  Transmission Date: 20071010
  Serious: Yes (Other)
  Sender: FDA-Public Use
  Company Number: 011704

PATIENT
  Age: 14 Year
  Sex: Male
  Weight: 127 kg

DRUGS (2)
  1. CLARAVIS [Suspect]
     Indication: ACNE
     Dosage: 100 MG/DAY, ORAL
     Route: 048
     Dates: start: 20061201, end: 20070207
  2. CLARAVIS [Suspect]
     Indication: ACNE CYSTIC
     Dosage: 100 MG/DAY, ORAL
     Route: 048
     Dates: start: 20061201, end: 20070207

REACTIONS (9)
  - ACNE [None]
  - BIPOLAR DISORDER [None]
  - CONDITION AGGRAVATED [None]
  - DEPRESSION [None]
  - DISORIENTATION [None]
  - EDUCATIONAL PROBLEM [None]
  - INSOMNIA [None]
  - MOOD SWINGS [None]
  - SUICIDAL IDEATION [None]
